FAERS Safety Report 6848480-6 (Version None)
Quarter: 2010Q3

REPORT INFORMATION
  Report Type: 
  Country: None (occurrence: None)
  Receive Date: 20100716
  Receipt Date: 20100707
  Transmission Date: 20110219
  Serious: Yes (Hospitalization)
  Sender: FDA-Public Use
  Company Number: US-JNJFOC-20100702456

PATIENT
  Sex: Female
  Weight: 61.24 kg

DRUGS (4)
  1. RISPERDAL [Suspect]
     Indication: PRODUCT USED FOR UNKNOWN INDICATION
     Dosage: HALF OF 0.25 MG TABLET
     Route: 048
  2. RISPERDAL [Suspect]
     Route: 048
  3. TIMOLOL MALEATE [Concomitant]
     Indication: EYE DISORDER
     Route: 031
  4. ARICEPT [Concomitant]
     Indication: AMNESIA
     Route: 048

REACTIONS (4)
  - DRUG PRESCRIBING ERROR [None]
  - FALL [None]
  - HEAD INJURY [None]
  - WRONG TECHNIQUE IN DRUG USAGE PROCESS [None]
